FAERS Safety Report 15168683 (Version 1)
Quarter: 2018Q3

REPORT INFORMATION
  Report Type: Spontaneous
  Country: FR (occurrence: FR)
  Receive Date: 20180720
  Receipt Date: 20180720
  Transmission Date: 20181010
  Serious: Yes (Death)
  Sender: FDA-Public Use
  Company Number: FR-TEVA-2018-FR-927643

PATIENT
  Age: 86 Year
  Sex: Female
  Weight: 73 kg

DRUGS (1)
  1. METHOTREXATE. [Suspect]
     Active Substance: METHOTREXATE
     Route: 048
     Dates: start: 20160808, end: 20160815

REACTIONS (2)
  - Aplasia [Fatal]
  - Sepsis [Fatal]

NARRATIVE: CASE EVENT DATE: 20160808
